FAERS Safety Report 4305789-8 (Version None)
Quarter: 2004Q1

REPORT INFORMATION
  Report Type: 
  Country: None (occurrence: None)
  Receive Date: 20040225
  Receipt Date: 20040218
  Transmission Date: 20041129
  Serious: Yes (Other)
  Sender: FDA-Public Use
  Company Number: HQWYE198708JAN04

PATIENT
  Age: 64 Year
  Sex: Male

DRUGS (5)
  1. CORDARONE [Suspect]
     Indication: ARRHYTHMIA SUPRAVENTRICULAR
     Dosage: SEE IMAGE
     Route: 048
     Dates: start: 20031124, end: 20031201
  2. CORDARONE [Suspect]
     Indication: ARRHYTHMIA SUPRAVENTRICULAR
     Dosage: SEE IMAGE
     Route: 048
     Dates: start: 20031201, end: 20040108
  3. SEREVENT [Concomitant]
  4. PROPINE [Concomitant]
  5. PROLAIR (BECLOMETASONE DIPROPIONATE) [Concomitant]

REACTIONS (2)
  - HEADACHE [None]
  - INTRACRANIAL PRESSURE INCREASED [None]
